FAERS Safety Report 15602893 (Version 1)
Quarter: 2018Q4

REPORT INFORMATION
  Report Type: Spontaneous
  Country: US (occurrence: US)
  Receive Date: 20181109
  Receipt Date: 20181109
  Transmission Date: 20190205
  Serious: Yes (Hospitalization)
  Sender: FDA-Public Use
  Company Number: US-AMGEN-USASP2017128492

PATIENT
  Age: 91 Year
  Sex: Male

DRUGS (1)
  1. PROLIA [Suspect]
     Active Substance: DENOSUMAB
     Indication: OSTEITIS DEFORMANS
     Dosage: 60 MG, UNK
     Route: 065

REACTIONS (2)
  - Hypocalcaemia [Recovered/Resolved]
  - Off label use [Unknown]
